FAERS Safety Report 7599724-7 (Version None)
Quarter: 2011Q2

REPORT INFORMATION
  Report Type: 
  Country: None (occurrence: None)
  Receive Date: 20110629
  Receipt Date: 20110613
  Transmission Date: 20111010
  Serious: Yes (Hospitalization)
  Sender: FDA-Public Use
  Company Number: 2011-0879

PATIENT
  Sex: Male

DRUGS (13)
  1. APO-GO PFS (APO-GO) (APOMORPHINE HYDROCHLORIDE) (APOMORPHINE HYDROCHLO [Suspect]
     Indication: PARKINSON'S DISEASE
     Dosage: 2.7 ML/HOUR 14 HOURS/DAY (CONTINUOUS), SUBCUTANEOUS
     Route: 058
     Dates: start: 20100423, end: 20110201
  2. ENTACAPONE [Concomitant]
  3. STALEVO (STALEVO) [Concomitant]
  4. RIVASTIGMINE TARTRATE [Concomitant]
  5. DURAGESIC-100 [Concomitant]
  6. GABAPENTIN [Concomitant]
  7. FLUDROCORTISONE ACETATE [Concomitant]
  8. TAMSULOSIN HCL [Concomitant]
  9. NUSEALS (ACETYLSALICYLIC ACID) [Concomitant]
  10. ASPIRIN [Concomitant]
  11. SINAMET (SINEMET) [Concomitant]
  12. CLONAZEPAM [Concomitant]
  13. ALLOPURINOL [Concomitant]

REACTIONS (4)
  - RASH [None]
  - CELLULITIS [None]
  - NODULE [None]
  - SKIN NECROSIS [None]
